FAERS Safety Report 5704157-1 (Version None)
Quarter: 2008Q2

REPORT INFORMATION
  Report Type: 
  Country: None (occurrence: None)
  Receive Date: 20080414
  Receipt Date: 20080414
  Transmission Date: 20081010
  Serious: Yes (Hospitalization)
  Sender: FDA-Public Use
  Company Number: None

PATIENT
  Age: 81 Year
  Sex: Female
  Weight: 50 kg

DRUGS (24)
  1. HEPARIN [Suspect]
     Indication: EMBOLISM VENOUS
     Dosage: 1,000 UNITS PER PROTOCOL IV PUSH   : 3,000 UNITS PER PROTOCOL IV PUSH
     Route: 042
     Dates: start: 20080225, end: 20080313
  2. ACETAMINOPHEN [Concomitant]
  3. CALCIUM GLUCONATE [Concomitant]
  4. CIPROFLOXACIN [Concomitant]
  5. FUROSEMIDE [Concomitant]
  6. HYDROMORPHONE HCL [Concomitant]
  7. REGULAR INSULIN [Concomitant]
  8. MAGNESIUM OXIDE [Concomitant]
  9. ONDANSETRON [Concomitant]
  10. PANTOPRAZOLE SODIUM [Concomitant]
  11. TPN [Concomitant]
  12. POTASSIUM CHLORIDE [Concomitant]
  13. QUETIAPINE FUMARATE [Concomitant]
  14. SALINE FLUSH [Concomitant]
  15. SENNA [Concomitant]
  16. VANCOMYCIN [Concomitant]
  17. ZIPRASIDONE HCL [Concomitant]
  18. ZOLEDRONIC ACID [Concomitant]
  19. ZOSYN [Concomitant]
  20. HEPARIN [Suspect]
     Dosage: 3,000 UNITS PER PROTOCOL IV PUSH
     Route: 042
  21. HEPARIN [Suspect]
  22. HEPARIN [Suspect]
  23. HEPARIN [Suspect]
  24. HEPARIN [Suspect]

REACTIONS (2)
  - DRUG HYPERSENSITIVITY [None]
  - HEPARIN-INDUCED THROMBOCYTOPENIA [None]
